FAERS Safety Report 9407870 (Version 3)
Quarter: 2013Q4

REPORT INFORMATION
  Report Type: Report from Study
  Country: US (occurrence: US)
  Receive Date: 20130718
  Receipt Date: 20131205
  Transmission Date: 20140711
  Serious: Yes (Other)
  Sender: FDA-Public Use
  Company Number: US-ELI_LILLY_AND_COMPANY-US201307002666

PATIENT
  Age: 68 Year
  Sex: Male
  Weight: 98.41 kg

DRUGS (59)
  1. OLANZAPINE LONG-ACTING IM [Suspect]
     Indication: SCHIZOPHRENIA
     Dosage: 300 MG, OTHER
     Route: 030
     Dates: start: 20100623
  2. OLANZAPINE LONG-ACTING IM [Suspect]
     Dosage: 300 MG, UNK
     Route: 030
     Dates: start: 20100707
  3. OLANZAPINE LONG-ACTING IM [Suspect]
     Dosage: 300 MG, UNK
     Route: 030
     Dates: start: 20100902
  4. OLANZAPINE LONG-ACTING IM [Suspect]
     Dosage: 300 MG, UNK
     Route: 030
     Dates: start: 20100916
  5. OLANZAPINE LONG-ACTING IM [Suspect]
     Dosage: 300 MG, UNK
     Route: 030
     Dates: start: 20100930
  6. OLANZAPINE LONG-ACTING IM [Suspect]
     Dosage: 300 MG, UNK
     Route: 030
     Dates: start: 20101014
  7. OLANZAPINE LONG-ACTING IM [Suspect]
     Dosage: 300 MG, UNK
     Route: 030
     Dates: start: 20101028
  8. OLANZAPINE LONG-ACTING IM [Suspect]
     Dosage: 300 MG, UNK
     Route: 030
     Dates: start: 20101111
  9. OLANZAPINE LONG-ACTING IM [Suspect]
     Dosage: 300 MG, UNK
     Route: 030
     Dates: start: 20101223
  10. OLANZAPINE LONG-ACTING IM [Suspect]
     Dosage: 300 MG, UNK
     Route: 030
     Dates: start: 20110107
  11. OLANZAPINE LONG-ACTING IM [Suspect]
     Dosage: 300 MG, UNK
     Route: 030
     Dates: start: 20110121
  12. OLANZAPINE LONG-ACTING IM [Suspect]
     Dosage: 300 MG, UNK
     Route: 030
     Dates: start: 20110203
  13. OLANZAPINE LONG-ACTING IM [Suspect]
     Dosage: 300 MG, UNK
     Route: 030
     Dates: start: 20110217
  14. OLANZAPINE LONG-ACTING IM [Suspect]
     Dosage: 300 MG, UNK
     Route: 030
     Dates: start: 20110303
  15. OLANZAPINE LONG-ACTING IM [Suspect]
     Dosage: 300 MG, UNK
     Route: 030
     Dates: start: 20110317
  16. OLANZAPINE LONG-ACTING IM [Suspect]
     Dosage: 300 MG, UNK
     Route: 030
     Dates: start: 20110331
  17. OLANZAPINE LONG-ACTING IM [Suspect]
     Dosage: 300 MG, UNK
     Route: 030
     Dates: start: 20110414
  18. OLANZAPINE LONG-ACTING IM [Suspect]
     Dosage: 300 MG, UNK
     Route: 030
     Dates: start: 20110428
  19. OLANZAPINE LONG-ACTING IM [Suspect]
     Dosage: 300 MG, UNK
     Route: 030
     Dates: start: 20110512
  20. OLANZAPINE LONG-ACTING IM [Suspect]
     Dosage: 300 MG, UNK
     Route: 030
     Dates: start: 20110526
  21. OLANZAPINE LONG-ACTING IM [Suspect]
     Dosage: 300 MG, UNK
     Route: 030
     Dates: start: 20110608
  22. OLANZAPINE LONG-ACTING IM [Suspect]
     Dosage: 300 MG, UNK
     Route: 030
     Dates: start: 20110624
  23. OLANZAPINE LONG-ACTING IM [Suspect]
     Dosage: 300 MG, UNK
     Route: 030
     Dates: start: 20110708
  24. OLANZAPINE LONG-ACTING IM [Suspect]
     Dosage: 300 MG, UNK
     Route: 030
     Dates: start: 20110721
  25. OLANZAPINE LONG-ACTING IM [Suspect]
     Dosage: 300 MG, UNK
     Route: 030
     Dates: start: 20110804
  26. OLANZAPINE LONG-ACTING IM [Suspect]
     Dosage: 300 MG, UNK
     Route: 030
     Dates: start: 20110823
  27. OLANZAPINE LONG-ACTING IM [Suspect]
     Dosage: 300 MG, UNK
     Route: 030
     Dates: start: 20110907
  28. OLANZAPINE LONG-ACTING IM [Suspect]
     Dosage: 300 MG, UNK
     Route: 030
     Dates: start: 20110929
  29. OLANZAPINE LONG-ACTING IM [Suspect]
     Dosage: 300 MG, UNK
     Route: 030
     Dates: start: 20111013
  30. OLANZAPINE LONG-ACTING IM [Suspect]
     Dosage: 300 MG, UNK
     Route: 030
     Dates: start: 20111101
  31. OLANZAPINE LONG-ACTING IM [Suspect]
     Dosage: 300 MG, UNK
     Route: 030
     Dates: start: 20111130
  32. OLANZAPINE LONG-ACTING IM [Suspect]
     Dosage: 300 MG, UNK
     Route: 030
     Dates: start: 20111216
  33. OLANZAPINE LONG-ACTING IM [Suspect]
     Dosage: 300 MG, UNK
     Route: 030
     Dates: start: 20111229
  34. OLANZAPINE LONG-ACTING IM [Suspect]
     Dosage: 300 MG, UNK
     Route: 030
     Dates: start: 20120112
  35. OLANZAPINE LONG-ACTING IM [Suspect]
     Dosage: 300 MG, UNK
     Route: 030
     Dates: start: 20120127
  36. OLANZAPINE LONG-ACTING IM [Suspect]
     Dosage: 300 MG, UNK
     Route: 030
     Dates: start: 20120213
  37. OLANZAPINE LONG-ACTING IM [Suspect]
     Dosage: 300 MG, UNK
     Route: 030
     Dates: start: 20120222
  38. OLANZAPINE LONG-ACTING IM [Suspect]
     Dosage: 300 MG, UNK
     Route: 030
     Dates: start: 20120313
  39. OLANZAPINE LONG-ACTING IM [Suspect]
     Dosage: 300 MG, UNK
     Route: 030
     Dates: start: 20120327
  40. OLANZAPINE LONG-ACTING IM [Suspect]
     Dosage: 300 MG, UNK
     Route: 030
     Dates: start: 20120410
  41. OLANZAPINE LONG-ACTING IM [Suspect]
     Dosage: 300 MG, UNK
     Route: 030
     Dates: start: 20120508
  42. OLANZAPINE LONG-ACTING IM [Suspect]
     Dosage: 300 MG, UNK
     Route: 030
     Dates: start: 20120522
  43. OLANZAPINE LONG-ACTING IM [Suspect]
     Dosage: 300 MG, UNK
     Route: 030
     Dates: start: 20120605
  44. OLANZAPINE LONG-ACTING IM [Suspect]
     Dosage: 300 MG, UNK
     Route: 030
     Dates: start: 20120619
  45. OLANZAPINE LONG-ACTING IM [Suspect]
     Dosage: 300 MG, UNK
     Route: 030
     Dates: start: 20120703
  46. OLANZAPINE LONG-ACTING IM [Suspect]
     Dosage: 300 MG, UNK
     Route: 030
     Dates: start: 20130524
  47. OLANZAPINE LONG-ACTING IM [Suspect]
     Dosage: 300 MG, UNK
     Route: 030
     Dates: start: 20130606
  48. OLANZAPINE LONG-ACTING IM [Suspect]
     Dosage: 300 MG, UNK
     Route: 030
     Dates: start: 20130705
  49. ZYPREXA [Suspect]
     Dosage: 5 MG, QD
     Route: 048
  50. COMBIVENT [Concomitant]
     Dosage: 2 DF, BID
  51. CLARITIN [Concomitant]
     Dosage: 10 MG, QD
  52. LOVASTATIN [Concomitant]
     Dosage: 40 MG, EACH EVENING
  53. METOPROLOL [Concomitant]
     Dosage: 25 MG, BID
  54. NIACIN [Concomitant]
     Dosage: 250 MG, BID
  55. RANITIDINE [Concomitant]
     Dosage: 150 MG, BID
  56. CITALOPRAM [Concomitant]
     Dosage: 40 MG, QD
  57. NEURONTIN [Concomitant]
     Dosage: 300 MG, BID
  58. ASPIRIN [Concomitant]
     Dosage: 31 MG, QD
  59. CALCIUM [Concomitant]
     Dosage: 600 MG, QD

REACTIONS (8)
  - Ataxia [Unknown]
  - Agitation [Unknown]
  - Confusional state [Unknown]
  - Hypotension [Unknown]
  - Sedation [Unknown]
  - Depressed level of consciousness [Unknown]
  - Asthenia [Unknown]
  - Miosis [Unknown]
